FAERS Safety Report 4355996-3 (Version None)
Quarter: 2004Q2

REPORT INFORMATION
  Report Type: 
  Country: None (occurrence: None)
  Receive Date: 20040511
  Receipt Date: 20040406
  Transmission Date: 20050107
  Serious: Yes (Hospitalization)
  Sender: FDA-Public Use
  Company Number: US-AMGEN-US072155

PATIENT
  Sex: Male
  Weight: 105 kg

DRUGS (3)
  1. EPOGEN [Suspect]
     Indication: PRE-EXISTING DISEASE
     Route: 058
     Dates: start: 20040227, end: 20040326
  2. RIBAVIRIN [Concomitant]
     Dates: start: 20040130
  3. PEG-INTRON [Concomitant]
     Route: 058
     Dates: start: 20040130

REACTIONS (3)
  - CELLULITIS [None]
  - PAIN IN EXTREMITY [None]
  - THROMBOPHLEBITIS [None]
